FAERS Safety Report 9675007 (Version 1)
Quarter: 2013Q4

REPORT INFORMATION
  Report Type: Spontaneous
  Country: CN (occurrence: CN)
  Receive Date: 20131107
  Receipt Date: 20131107
  Transmission Date: 20140711
  Serious: Yes (Other)
  Sender: FDA-Public Use
  Company Number: CN-BAYER-2013-132862

PATIENT
  Age: 1 Year
  Sex: Male
  Weight: 50 kg

DRUGS (1)
  1. GLUCOBAY [Suspect]
     Indication: BLOOD GLUCOSE ABNORMAL
     Dosage: 2 DF, QD
     Route: 048

REACTIONS (1)
  - Diabetes mellitus inadequate control [Unknown]
